FAERS Safety Report 19113817 (Version 3)
Quarter: 2023Q2

REPORT INFORMATION
  Report Type: Spontaneous
  Country: IT (occurrence: IT)
  Receive Date: 20210409
  Receipt Date: 20230622
  Transmission Date: 20230722
  Serious: Yes (Other)
  Sender: FDA-Public Use
  Company Number: IT-EMA-DD-20180803-TANEJAEVHP-152827

PATIENT
  Age: 66 Year
  Sex: Female

DRUGS (3)
  1. MELPHALAN [Suspect]
     Active Substance: MELPHALAN
     Indication: Plasma cell myeloma
     Dosage: 9 MG/M2 (DAYS 1-4, ALL CYCLES)
     Route: 065
  2. BORTEZOMIB [Suspect]
     Active Substance: BORTEZOMIB
     Indication: Plasma cell myeloma
     Dosage: 1.3 MILLIGRAM/SQ. METER (DAYS 1,4, 8, 11, 22, 25, 29 AND 32 CYCLES 1 TO 2
     Route: 065
  3. PREDNISONE [Suspect]
     Active Substance: PREDNISONE
     Indication: Plasma cell myeloma
     Dosage: 60 MILLIGRAM/SQ. METER (ON DAYS 1-4, ALL CYCLES)
     Route: 065

REACTIONS (2)
  - Hepatitis C [Recovered/Resolved]
  - Infection reactivation [Recovered/Resolved]
